FAERS Safety Report 23384114 (Version 1)
Quarter: 2024Q1

REPORT INFORMATION
  Report Type: Report from Study
  Country: IT (occurrence: IT)
  Receive Date: 20240109
  Receipt Date: 20240109
  Transmission Date: 20240410
  Serious: Yes (Hospitalization, Other)
  Sender: FDA-Public Use
  Company Number: None

PATIENT
  Age: 29 Year
  Sex: Female

DRUGS (3)
  1. QUETIAPINE [Suspect]
     Active Substance: QUETIAPINE
     Indication: Product used for unknown indication
     Dosage: 4 DOSAGE FORM, TOTAL
     Route: 048
     Dates: start: 20231201, end: 20231201
  2. ARIPIPRAZOLE [Suspect]
     Active Substance: ARIPIPRAZOLE
     Indication: Product used for unknown indication
     Dosage: 4 DOSAGE FORM, TOTAL
     Route: 048
     Dates: start: 20231201, end: 20231201
  3. FLURAZEPAM MONOHYDROCHLORIDE [Suspect]
     Active Substance: FLURAZEPAM MONOHYDROCHLORIDE
     Indication: Product used for unknown indication
     Dosage: 29 DOSAGE , TOTAL
     Route: 048
     Dates: start: 20231130, end: 20231201

REACTIONS (3)
  - Somnolence [Recovering/Resolving]
  - Drug abuse [Recovering/Resolving]
  - Intentional product misuse [Unknown]

NARRATIVE: CASE EVENT DATE: 20231201
